FAERS Safety Report 4765873-1 (Version None)
Quarter: 2005Q3

REPORT INFORMATION
  Report Type: 
  Country: None (occurrence: None)
  Receive Date: 20050907
  Receipt Date: 20050902
  Transmission Date: 20060218
  Serious: Yes (Life-Threatening)
  Sender: FDA-Public Use
  Company Number: 2005-132113-NL

PATIENT
  Age: 46 Year
  Sex: Female

DRUGS (12)
  1. ROCURONIUM BROMIDE [Suspect]
     Dosage: DF
  2. PHENTERMINE RESIN [Suspect]
     Indication: OBESITY
     Dosage: DF,ORAL
     Route: 048
  3. MIDAZOALM [Suspect]
     Dosage: DF
  4. FENTANYL [Suspect]
     Dosage: DF
  5. PROPOFOL [Suspect]
     Dosage: DF
  6. CEFAZOLIN SODIUM [Suspect]
     Dosage: DF
  7. INSULIN [Concomitant]
  8. RAMIPRIL [Concomitant]
  9. ATORVASTATIN [Concomitant]
  10. NITROUS OXIDE [Concomitant]
  11. SEVOFLURANE [Concomitant]
  12. MORPHINE [Concomitant]

REACTIONS (1)
  - MALIGNANT HYPERTENSION [None]
